FAERS Safety Report 23903357 (Version 3)
Quarter: 2024Q2

REPORT INFORMATION
  Report Type: Report from Study
  Country: US (occurrence: US)
  Receive Date: 20240527
  Receipt Date: 20240625
  Transmission Date: 20240716
  Serious: Yes (Hospitalization)
  Sender: FDA-Public Use
  Company Number: US-TAKEDA-2024TUS051277

PATIENT
  Sex: Female
  Weight: 66 kg

DRUGS (2)
  1. MARIBAVIR [Suspect]
     Active Substance: MARIBAVIR
     Indication: Cytomegalovirus infection
     Dosage: 400 MILLIGRAM, BID
     Route: 048
     Dates: start: 20240523
  2. MARIBAVIR [Suspect]
     Active Substance: MARIBAVIR
     Dosage: 400 MILLIGRAM, BID
     Route: 048
     Dates: start: 20240604

REACTIONS (6)
  - Hospitalisation [Unknown]
  - Rash [Recovered/Resolved]
  - Headache [Unknown]
  - Product distribution issue [Unknown]
  - Product packaging quantity issue [Unknown]
  - Product use issue [Unknown]
